FAERS Safety Report 9539838 (Version 1)
Quarter: 2013Q3

REPORT INFORMATION
  Report Type: Spontaneous
  Country: US (occurrence: US)
  Receive Date: 20130920
  Receipt Date: 20130920
  Transmission Date: 20140515
  Serious: No
  Sender: FDA-Public Use
  Company Number: US-PURDUE-USA-2010-0060074

PATIENT
  Sex: Male

DRUGS (1)
  1. DILAUDID TABLET [Suspect]
     Indication: PAIN
     Dosage: 8 MG, QID
     Dates: start: 201007

REACTIONS (5)
  - Drug withdrawal syndrome [Unknown]
  - Intentional drug misuse [Unknown]
  - Inadequate analgesia [Unknown]
  - Nausea [Unknown]
  - Diarrhoea [Unknown]
